FAERS Safety Report 8431642-4 (Version None)
Quarter: 2012Q2

REPORT INFORMATION
  Report Type: 
  Country: None (occurrence: None)
  Receive Date: 20120613
  Receipt Date: 20111130
  Transmission Date: 20120825
  Serious: No
  Sender: FDA-Public Use
  Company Number: US-GLAXOSMITHKLINE-A0956068A

PATIENT
  Age: 54 Year
  Sex: Female

DRUGS (9)
  1. POTASSIUM CL [Concomitant]
  2. LORAZEPAM [Concomitant]
  3. PANCREASE MT16 [Concomitant]
  4. IMITREX [Concomitant]
  5. SYNTHROID [Concomitant]
  6. PHILLIPS GEL CAPS [Concomitant]
     Indication: CONSTIPATION
  7. NODOZ [Concomitant]
  8. PEPCID AC [Concomitant]
  9. TREXIMET [Suspect]
     Indication: MIGRAINE
     Dosage: 1TAB AS REQUIRED
     Route: 048
     Dates: start: 20110501

REACTIONS (6)
  - ANXIETY [None]
  - BLOOD PRESSURE INCREASED [None]
  - FEELING ABNORMAL [None]
  - DIZZINESS [None]
  - CONDITION AGGRAVATED [None]
  - PRODUCT QUALITY ISSUE [None]
